FAERS Safety Report 9034442 (Version 1)
Quarter: 2013Q1

REPORT INFORMATION
  Report Type: Spontaneous
  Country: DK (occurrence: None)
  Receive Date: 20130111
  Receipt Date: 20130111
  Transmission Date: 20140127
  Serious: Yes (Other)
  Sender: FDA-Public Use
  Company Number: 2013MA000139

PATIENT
  Age: 39 Year
  Sex: Female

DRUGS (5)
  1. TRAMADOL HYDROCHLORIDE TABLETS, 50 MG (PUREPAC) (TRAMADOL) [Suspect]
     Dates: start: 20121212
  2. CYCLIZINE [Concomitant]
  3. ZOPICLONE [Concomitant]
  4. PARACETAMOL [Concomitant]
  5. DIAZEPAM [Concomitant]

REACTIONS (1)
  - Akathisia [None]
